FAERS Safety Report 4694991-1 (Version None)
Quarter: 2005Q2

REPORT INFORMATION
  Report Type: 
  Country: None (occurrence: None)
  Receive Date: 20050614
  Receipt Date: 20050517
  Transmission Date: 20051028
  Serious: No
  Sender: FDA-Public Use
  Company Number: USA050495531

PATIENT
  Age: 71 Year
  Sex: Male

DRUGS (10)
  1. CIALIS [Suspect]
     Indication: ERECTILE DYSFUNCTION
     Dosage: 20 MG
     Dates: start: 20050301, end: 20050101
  2. MYSOLINE [Concomitant]
  3. TEMAZEPAM [Concomitant]
  4. SEROQUEL [Concomitant]
  5. GLIPIZIDE [Concomitant]
  6. AMOXICILLIN [Concomitant]
  7. HYDROCODONE [Concomitant]
  8. HYDROXYZINE [Concomitant]
  9. DETROL [Concomitant]
  10. LITHIUM [Concomitant]

REACTIONS (3)
  - JAW OPERATION [None]
  - THERAPEUTIC RESPONSE DECREASED [None]
  - URINARY INCONTINENCE [None]
